FAERS Safety Report 14007393 (Version 20)
Quarter: 2020Q4

REPORT INFORMATION
  Report Type: Report from Study
  Country: CA (occurrence: CA)
  Receive Date: 20170925
  Receipt Date: 20201224
  Transmission Date: 20210113
  Serious: Yes (Hospitalization, Other)
  Sender: FDA-Public Use
  Company Number: PHHY2014CA014290

PATIENT
  Age: 66 Year
  Sex: Male

DRUGS (36)
  1. RAN ATORVASTATIN [Concomitant]
     Indication: BLOOD CHOLESTEROL ABNORMAL
     Dosage: 20 MG, QD (AT DINNER TIME)
     Route: 065
  2. MICARDIS PLUS [Concomitant]
     Active Substance: HYDROCHLOROTHIAZIDE\TELMISARTAN
     Indication: PRODUCT USED FOR UNKNOWN INDICATION
     Dosage: 80 MG, QD
     Route: 065
  3. IRON [Concomitant]
     Active Substance: IRON
     Indication: PRODUCT USED FOR UNKNOWN INDICATION
     Dosage: UNK
     Route: 065
     Dates: start: 201701
  4. EURO DOCUSATE C [Concomitant]
     Indication: CONSTIPATION
     Dosage: 2 DF, QD
     Route: 048
  5. INDAPAMIDE. [Concomitant]
     Active Substance: INDAPAMIDE
     Indication: HYPERTENSION
     Dosage: 1 DF, QD
     Route: 048
     Dates: start: 2019
  6. EMOLAX [Concomitant]
     Indication: CONSTIPATION
     Dosage: 1G/G POWDER TAKEN ORALLY 17 G IN LIQUID AND DRINK 2X PER DAY IF NEEDED
     Route: 065
  7. METFORMIN [Concomitant]
     Active Substance: METFORMIN HYDROCHLORIDE
     Indication: PRODUCT USED FOR UNKNOWN INDICATION
     Dosage: 1.5 DF, BID
     Route: 065
  8. METFORMIN [Concomitant]
     Active Substance: METFORMIN HYDROCHLORIDE
     Dosage: 850 MG, BID
     Route: 065
  9. ASA [Concomitant]
     Active Substance: ASPIRIN
     Indication: PRODUCT USED FOR UNKNOWN INDICATION
     Dosage: UNK UNK, QD
     Route: 065
  10. AMLODIPINE [Concomitant]
     Active Substance: AMLODIPINE BESYLATE
     Indication: BLOOD PRESSURE ABNORMAL
     Dosage: 2.5 MG PILL 1 PER DAY AT BEDTIME WITH 5 MG FOR A TOTAL OF 7.5 MG
     Route: 065
  11. PANTOPRAZOLE [Concomitant]
     Active Substance: PANTOPRAZOLE
     Indication: GASTROINTESTINAL DISORDER
     Dosage: 40 MG, QD
     Route: 065
  12. SANDOZ-METFORMIN FC [Concomitant]
     Active Substance: METFORMIN HYDROCHLORIDE
     Indication: DIABETES MELLITUS
     Dosage: 850 MG, BID
     Route: 065
  13. LANTUS [Concomitant]
     Active Substance: INSULIN GLARGINE
     Indication: PRODUCT USED FOR UNKNOWN INDICATION
     Dosage: 15 U, QD PRN
     Route: 058
  14. TRANDOLAPRIL. [Concomitant]
     Active Substance: TRANDOLAPRIL
     Indication: BLOOD PRESSURE ABNORMAL
     Dosage: 1 MG, QD
     Route: 048
  15. NOVO-GABAPENTIN [Concomitant]
     Indication: PAIN
     Dosage: 600 MG, QD
     Route: 065
  16. TEVA-DUTASTERIDE [Concomitant]
     Indication: PROSTATIC DISORDER
     Dosage: 0.5 MG, QD
     Route: 048
  17. APO QUETIAPINE [Concomitant]
     Active Substance: QUETIAPINE
     Indication: SLEEP DISORDER
     Dosage: 0.5 DF, QD (1/2 PILL 12.5 MG 1X PER DAY PM)
     Route: 065
  18. JAMP SENNA S [Concomitant]
     Indication: CONSTIPATION
     Dosage: 806 MG, QD
     Route: 065
  19. SANDOSTATIN LAR DEPOT [Suspect]
     Active Substance: OCTREOTIDE ACETATE
  20. DIABETA [Concomitant]
     Active Substance: GLYBURIDE
     Indication: PRODUCT USED FOR UNKNOWN INDICATION
     Dosage: 2 DF, BID
     Route: 065
  21. AMLODIPINE [Concomitant]
     Active Substance: AMLODIPINE BESYLATE
     Dosage: 5 MG, UNK
     Route: 048
  22. RIVA-BACLOFEN [Concomitant]
     Indication: MUSCLE SPASMS
     Dosage: 10 MG, QD, (PILLS)
     Route: 048
  23. LASIX [Concomitant]
     Active Substance: FUROSEMIDE
     Indication: HYPERTENSION
     Dosage: 1 DF, QD
     Route: 048
     Dates: start: 2019
  24. SANDOSTATIN LAR DEPOT [Suspect]
     Active Substance: OCTREOTIDE ACETATE
     Indication: ACROMEGALY
     Dosage: 20 MG, QMO (EVERY 4 WEEKS)
     Route: 030
     Dates: start: 20070614
  25. SANDOSTATIN LAR DEPOT [Suspect]
     Active Substance: OCTREOTIDE ACETATE
  26. LIPITOR [Concomitant]
     Active Substance: ATORVASTATIN CALCIUM
     Indication: PRODUCT USED FOR UNKNOWN INDICATION
     Dosage: 20 MG, QD
     Route: 065
  27. TEVA TAMSULOSIN CR [Concomitant]
     Indication: PROSTATIC DISORDER
     Dosage: 0.4 MG, PILL - LA 1 PER DAY IN THE AM
     Route: 065
  28. SANDOZ AMLODIPINE [Concomitant]
     Active Substance: AMLODIPINE MALEATE
     Indication: BLOOD PRESSURE ABNORMAL
     Dosage: 2.5 MG, QD
     Route: 065
  29. IRON SULFATE [Concomitant]
     Active Substance: FERROUS SULFATE ANHYDROUS
     Indication: PRODUCT USED FOR UNKNOWN INDICATION
     Dosage: 1 DF, QD
     Route: 065
  30. APO GABAPENTIN [Concomitant]
     Active Substance: GABAPENTIN
     Indication: PAIN
     Dosage: 300 MG, QD
     Route: 048
  31. CAL.D [Concomitant]
     Indication: OSTEOPOROSIS
     Dosage: 1 DF, BID (500 MG+400 UI PILL 1 PILL 2 X A DAY AT DINNER)
     Route: 065
  32. APO-FUROSEMIDE [Concomitant]
     Active Substance: FUROSEMIDE
     Indication: BLOOD PRESSURE ABNORMAL
     Dosage: 20 MG, QD
     Route: 065
  33. JANUVIA [Concomitant]
     Active Substance: SITAGLIPTIN PHOSPHATE
     Indication: DIABETES MELLITUS
     Dosage: 100 MG, QD
     Route: 065
  34. MB 12 [Concomitant]
     Active Substance: METHYLCOBALAMIN
     Indication: VITAMIN SUPPLEMENTATION
     Dosage: 1 DF, QD (1200 MCG LA 1200 MCG PILL LA 1X PER DAY)
     Route: 065
  35. PIOGLITAZONE. [Concomitant]
     Active Substance: PIOGLITAZONE
     Indication: PRODUCT USED FOR UNKNOWN INDICATION
     Dosage: 15 MG, QD
     Route: 065
  36. RIVA-BACLOFEN [Concomitant]
     Dosage: 1- MG PILL 2 PILLS 5 MG 1X PER DAY AT BEDTIMEUNK
     Route: 048

REACTIONS (21)
  - Injection site pain [Recovering/Resolving]
  - Arthralgia [Unknown]
  - Blood pressure increased [Unknown]
  - Oropharyngeal pain [Unknown]
  - Injury [Unknown]
  - Tremor [Unknown]
  - Infection [Unknown]
  - Heart rate decreased [Unknown]
  - Fall [Unknown]
  - Cardiac arrest [Unknown]
  - Chills [Unknown]
  - Prostatomegaly [Unknown]
  - Scratch [Unknown]
  - Anaemia [Unknown]
  - Vomiting [Unknown]
  - Bone marrow disorder [Unknown]
  - Post procedural complication [Unknown]
  - Loss of consciousness [Unknown]
  - Procedural pain [Unknown]
  - Musculoskeletal pain [Unknown]
  - Contusion [Unknown]

NARRATIVE: CASE EVENT DATE: 20140122
